FAERS Safety Report 6795138-8 (Version None)
Quarter: 2010Q2

REPORT INFORMATION
  Report Type: 
  Country: None (occurrence: None)
  Receive Date: 20100625
  Receipt Date: 20100421
  Transmission Date: 20101027
  Serious: No
  Sender: FDA-Public Use
  Company Number: US-TYCO HEALTHCARE/MALLINCKRODT-T201001061

PATIENT

DRUGS (4)
  1. HYDROMORPHONE HCL [Suspect]
     Indication: NECK PAIN
     Dosage: 2 MG, QHS
     Dates: start: 20100201, end: 20100201
  2. PREDNISONE [Concomitant]
     Dosage: UNK
     Dates: start: 20100201, end: 20100201
  3. ATENOLOL [Concomitant]
     Indication: ATRIAL FLUTTER
     Dosage: 0.125 UNK, QD
  4. SYNTHROID [Concomitant]
     Indication: HYPOTHYROIDISM

REACTIONS (3)
  - DRUG DIVERSION [None]
  - DRUG INEFFECTIVE [None]
  - INTENTIONAL DRUG MISUSE [None]
